FAERS Safety Report 8916252 (Version 2)
Quarter: 2012Q4

REPORT INFORMATION
  Report Type: 
  Country: MX (occurrence: MX)
  Receive Date: 20121120
  Receipt Date: 20121224
  Transmission Date: 20130627
  Serious: Yes (Other)
  Sender: FDA-Public Use
  Company Number: MX-ELI_LILLY_AND_COMPANY-MX201211003024

PATIENT
  Age: 53 Year
  Sex: Male

DRUGS (9)
  1. PROZAC [Suspect]
     Indication: DEPRESSION
     Dosage: 20 mg, qd
     Dates: start: 2010
  2. PROZAC [Suspect]
     Dosage: 60 mg, qd
  3. CELECOXIB [Concomitant]
     Dosage: 200 mg, qd
  4. DEXTROPROPOXYPHENE [Concomitant]
     Indication: PAIN
     Dosage: 65 mg, every 8 hrs
  5. GABAPENTIN [Concomitant]
     Dosage: 300 mg, qd
  6. PARACETAMOL W/TRAMADOL [Concomitant]
     Dosage: UNK, every 8 hrs
  7. CLONAZEPAM [Concomitant]
     Dosage: 5 Gtt, qd
  8. BEZAFIBRATE [Concomitant]
     Dosage: 200 mg, UNK
  9. OMEPRAZOLE [Concomitant]
     Dosage: 20 mg, bid

REACTIONS (9)
  - Blood pressure diastolic increased [Unknown]
  - Muscle spasms [Unknown]
  - Eye pain [Recovered/Resolved]
  - Pain [Unknown]
  - Headache [Unknown]
  - Vision blurred [Unknown]
  - Feeling of body temperature change [Unknown]
  - Blood triglycerides increased [Unknown]
  - Blood cholesterol increased [Unknown]
